FAERS Safety Report 16468903 (Version 6)
Quarter: 2020Q3

REPORT INFORMATION
  Report Type: Spontaneous
  Country: US (occurrence: US)
  Receive Date: 20190624
  Receipt Date: 20200721
  Transmission Date: 20201102
  Serious: No
  Sender: FDA-Public Use
  Company Number: US-PFIZER INC-2019269126

PATIENT
  Age: 58 Year
  Sex: Male

DRUGS (1)
  1. LYRICA [Suspect]
     Active Substance: PREGABALIN
     Indication: DIABETIC NEUROPATHY
     Dosage: 100 MG, 3X/DAY (SIG: TAKE 1 CAPSULE (100 MG TOTAL) BY MOUTH 3 (THREE) TIMES A DAY)
     Route: 048
     Dates: start: 20190703

REACTIONS (2)
  - Paraesthesia [Unknown]
  - Withdrawal syndrome [Unknown]
